FAERS Safety Report 21493442 (Version 2)
Quarter: 2022Q4

REPORT INFORMATION
  Report Type: Spontaneous
  Country: US (occurrence: US)
  Receive Date: 20221021
  Receipt Date: 20221025
  Transmission Date: 20230113
  Serious: No
  Sender: FDA-Public Use
  Company Number: US-NOVARTISTESTPH-NVSC2022US234626

PATIENT
  Sex: Male
  Weight: 107.9 kg

DRUGS (3)
  1. LIDOCAINE [Interacting]
     Active Substance: LIDOCAINE
     Indication: Wound infection
     Dosage: UNK
     Route: 061
     Dates: start: 20220909
  2. SILVADENE [Interacting]
     Active Substance: SILVER SULFADIAZINE
     Indication: Wound infection
     Dosage: UNK
     Route: 061
     Dates: start: 20220909
  3. COLLAGENASE SANTYL [Interacting]
     Active Substance: COLLAGENASE CLOSTRIDIUM HISTOLYTICUM
     Indication: Wound infection
     Dosage: UNK
     Route: 061
     Dates: start: 20220909

REACTIONS (3)
  - Application site vesicles [Unknown]
  - Application site pain [Unknown]
  - Drug interaction [Unknown]

NARRATIVE: CASE EVENT DATE: 20220909
